FAERS Safety Report 24459713 (Version 1)
Quarter: 2024Q4

REPORT INFORMATION
  Report Type: Report from Study
  Country: US (occurrence: US)
  Receive Date: 20241018
  Receipt Date: 20241018
  Transmission Date: 20250115
  Serious: No
  Sender: ROCHE
  Company Number: US-ROCHE-3540506

PATIENT
  Age: 73 Year
  Sex: Male

DRUGS (4)
  1. RITUXAN [Suspect]
     Active Substance: RITUXIMAB
     Indication: Polymyositis
     Dosage: DATE OF TREATMENT: 02/APR/2024, 23/FEB/2023, 09/FEB/2023, 18/AUG/2022, 04/AUG/2022, 17/FEB/2022, 03/
     Route: 041
  2. RITUXAN [Suspect]
     Active Substance: RITUXIMAB
     Indication: Interstitial lung disease
  3. RITUXAN [Suspect]
     Active Substance: RITUXIMAB
     Indication: Immune system disorder
  4. RITUXAN [Suspect]
     Active Substance: RITUXIMAB
     Indication: Dermatomyositis

REACTIONS (2)
  - Off label use [Unknown]
  - No adverse event [Unknown]
